FAERS Safety Report 15275854 (Version 2)
Quarter: 2018Q3

REPORT INFORMATION
  Report Type: Spontaneous
  Country: US (occurrence: US)
  Receive Date: 20180814
  Receipt Date: 20180916
  Transmission Date: 20181010
  Serious: Yes (Other)
  Sender: FDA-Public Use
  Company Number: US-TORRENT-00006744

PATIENT
  Age: 25 Year
  Sex: Male

DRUGS (4)
  1. CLOBAZAM [Concomitant]
     Active Substance: CLOBAZAM
     Indication: SEIZURE
     Dosage: 5 MG QHS, AT BEDTIME?WEEK 1
  2. LEVETIRACETAM. [Suspect]
     Active Substance: LEVETIRACETAM
     Indication: SEIZURE
  3. VALPROATE [Suspect]
     Active Substance: VALPROIC ACID
     Indication: SEIZURE
  4. CLONAZEPAM. [Suspect]
     Active Substance: CLONAZEPAM
     Indication: SEIZURE
     Dosage: WEEK 0

REACTIONS (2)
  - Drug ineffective [Unknown]
  - Seizure [Recovering/Resolving]
